FAERS Safety Report 13363972 (Version 1)
Quarter: 2017Q1

REPORT INFORMATION
  Report Type: Spontaneous
  Country: JP (occurrence: JP)
  Receive Date: 20170323
  Receipt Date: 20170323
  Transmission Date: 20170429
  Serious: Yes (Hospitalization)
  Sender: FDA-Public Use
  Company Number: JP-PFIZER INC-2017122863

PATIENT
  Age: 89 Year
  Sex: Female

DRUGS (6)
  1. MAGMITT [Concomitant]
     Active Substance: MAGNESIUM OXIDE
     Dosage: UNK
  2. EBRANTIL [Concomitant]
     Active Substance: URAPIDIL
     Dosage: UNK
  3. PAXIL [Suspect]
     Active Substance: PAROXETINE HYDROCHLORIDE
     Indication: PAIN
     Dosage: UNK
     Dates: start: 20160902, end: 20160906
  4. CELECOX [Suspect]
     Active Substance: CELECOXIB
     Indication: PROCEDURAL PAIN
     Dosage: 200 MG, DAILY(TWO 100-MG TABLETS)
     Route: 048
     Dates: start: 20160805, end: 20160906
  5. VASOLAN [Concomitant]
     Active Substance: VERAPAMIL HYDROCHLORIDE
     Dosage: UNK
  6. LENDORMIN [Concomitant]
     Active Substance: BROTIZOLAM

REACTIONS (3)
  - Inappropriate antidiuretic hormone secretion [Unknown]
  - Therapeutic response decreased [Unknown]
  - Hyponatraemia [Recovered/Resolved]

NARRATIVE: CASE EVENT DATE: 20160906
